FAERS Safety Report 6040118-3 (Version None)
Quarter: 2009Q1

REPORT INFORMATION
  Report Type: 
  Country: None (occurrence: None)
  Receive Date: 20090116
  Receipt Date: 20080110
  Transmission Date: 20090719
  Serious: No
  Sender: FDA-Public Use
  Company Number: US-BRISTOL-MYERS SQUIBB COMPANY-14015788

PATIENT
  Age: 41 Year
  Sex: Female
  Weight: 50 kg

DRUGS (5)
  1. ABILIFY [Suspect]
     Route: 048
     Dates: start: 20060517, end: 20070226
  2. ZOLOFT [Concomitant]
  3. KLONOPIN [Concomitant]
  4. TRAZODONE HCL [Concomitant]
  5. NAPROXEN [Concomitant]

REACTIONS (4)
  - ADVERSE EVENT [None]
  - DYSPEPSIA [None]
  - PAIN [None]
  - ROAD TRAFFIC ACCIDENT [None]
